FAERS Safety Report 5858692-6 (Version None)
Quarter: 2008Q3

REPORT INFORMATION
  Report Type: 
  Country: None (occurrence: None)
  Receive Date: 20080826
  Receipt Date: 20080822
  Transmission Date: 20090109
  Serious: Yes (Hospitalization)
  Sender: FDA-Public Use
  Company Number: FR-BOEHRINGER INGELHEIM GMBH, GERMANY-2008-FF-00600FF

PATIENT
  Sex: Female

DRUGS (4)
  1. SPIRIVA [Suspect]
     Dates: start: 20080717
  2. STRESAM [Suspect]
     Dates: start: 20080717
  3. OXEOL [Concomitant]
     Indication: CHRONIC OBSTRUCTIVE PULMONARY DISEASE
  4. LEVOTHYROXINE [Concomitant]
     Indication: THYROIDECTOMY

REACTIONS (1)
  - RASH MACULO-PAPULAR [None]
